FAERS Safety Report 14007867 (Version 7)
Quarter: 2018Q3

REPORT INFORMATION
  Report Type: Spontaneous
  Country: US (occurrence: US)
  Receive Date: 20170925
  Receipt Date: 20180801
  Transmission Date: 20181010
  Serious: Yes (Hospitalization)
  Sender: FDA-Public Use
  Company Number: US-BIOGEN-2017BI00462711

PATIENT
  Age: 52 Year
  Sex: Female

DRUGS (1)
  1. TYSABRI [Suspect]
     Active Substance: NATALIZUMAB
     Indication: MULTIPLE SCLEROSIS
     Route: 042
     Dates: start: 20110816, end: 20170905

REACTIONS (5)
  - Drug ineffective [Not Recovered/Not Resolved]
  - Aortic aneurysm [Recovered/Resolved]
  - Pyrexia [Not Recovered/Not Resolved]
  - Ischaemic stroke [Recovered/Resolved]
  - Postoperative thrombosis [Unknown]

NARRATIVE: CASE EVENT DATE: 2017
